FAERS Safety Report 12946767 (Version 1)
Quarter: 2016Q4

REPORT INFORMATION
  Report Type: Spontaneous
  Country: US (occurrence: US)
  Receive Date: 20161116
  Receipt Date: 20161116
  Transmission Date: 20170207
  Serious: No
  Sender: FDA-Public Use
  Company Number: US-TEVA-700255USA

PATIENT
  Sex: Male

DRUGS (3)
  1. LAMOTRIGINE. [Suspect]
     Active Substance: LAMOTRIGINE
  2. ALPRAZOLAM. [Suspect]
     Active Substance: ALPRAZOLAM
  3. METHYLPHENIDATE. [Suspect]
     Active Substance: METHYLPHENIDATE

REACTIONS (1)
  - Hypertension [Unknown]
